FAERS Safety Report 7563588-8 (Version None)
Quarter: 2011Q2

REPORT INFORMATION
  Report Type: 
  Country: None (occurrence: None)
  Receive Date: 20110622
  Receipt Date: 20110113
  Transmission Date: 20111010
  Serious: Yes (Hospitalization)
  Sender: FDA-Public Use
  Company Number: CH-PFIZER INC-2008081223

PATIENT
  Age: 48 Year
  Sex: Female
  Weight: 65 kg

DRUGS (9)
  1. EPIRUBICIN HYDROCHLORIDE [Suspect]
     Dosage: 160 MG, ONCE  IN 2 WEEKS
     Route: 041
     Dates: start: 20080519, end: 20080707
  2. SOLU-MEDROL [Concomitant]
     Dosage: 50 MG, UNK
     Route: 042
     Dates: start: 20080519
  3. CIMICIFUGA [Concomitant]
     Dosage: 6.5 MG, 1X/DAY
  4. PASPERTIN [Concomitant]
     Dosage: 10 MG, UNK
     Route: 042
     Dates: start: 20080519
  5. METOPROLOL SUCCINATE [Concomitant]
     Indication: HYPERTENSION
     Dosage: 50 MG, 1X/DAY
  6. CYCLOPHOSPHAMIDE [Suspect]
     Dosage: 1300 MG, ONCE  IN 2 WEEKS
     Route: 041
     Dates: start: 20080519, end: 20080707
  7. TAXOL [Suspect]
     Dosage: 310 MG, ONCE IN 2 WEEKS
     Route: 041
     Dates: start: 20080721
  8. ZOFRAN [Concomitant]
     Dosage: 4 MG, UNK
     Route: 042
     Dates: start: 20080519
  9. NEULASTA [Suspect]
     Indication: CHEMOTHERAPY
     Dosage: 6 MG, ONCE IN 2 WEEKS
     Route: 041
     Dates: start: 20080606, end: 20080708

REACTIONS (1)
  - LUNG INFILTRATION [None]
